FAERS Safety Report 9201373 (Version 2)
Quarter: 2013Q2

REPORT INFORMATION
  Report Type: Spontaneous
  Country: MX (occurrence: MX)
  Receive Date: 20130401
  Receipt Date: 20130410
  Transmission Date: 20140414
  Serious: Yes (Death)
  Sender: FDA-Public Use
  Company Number: PHHY2013MX031082

PATIENT
  Age: 101 Year
  Sex: Female

DRUGS (2)
  1. EXELON PATCH [Suspect]
     Dosage: 9.5 MG, UNK
     Route: 062
  2. EXELON PATCH [Suspect]
     Dosage: UNK UKN, HALF PATCH
     Route: 062

REACTIONS (2)
  - Cardiac disorder [Fatal]
  - Wrong technique in drug usage process [Unknown]
